FAERS Safety Report 6963735-2 (Version None)
Quarter: 2010Q3

REPORT INFORMATION
  Report Type: 
  Country: None (occurrence: None)
  Receive Date: 20100902
  Receipt Date: 20100825
  Transmission Date: 20110219
  Serious: Yes (Other)
  Sender: FDA-Public Use
  Company Number: US-AMGEN-QUU432544

PATIENT
  Sex: Male

DRUGS (17)
  1. NPLATE [Suspect]
     Indication: IDIOPATHIC THROMBOCYTOPENIC PURPURA
     Dates: start: 20090611, end: 20090701
  2. CORTICOSTEROIDS [Concomitant]
     Dates: start: 20090607
  3. IMMU-G [Concomitant]
     Route: 042
     Dates: start: 20090607, end: 20090611
  4. RITUXIMAB [Concomitant]
     Dates: start: 20090609, end: 20090616
  5. ASPIRIN [Concomitant]
     Route: 048
  6. BUSPIRONE HCL [Concomitant]
     Route: 048
  7. CITALOPRAM HYDROBROMIDE [Concomitant]
     Route: 048
  8. METFORMIN [Concomitant]
     Route: 048
  9. HYDROCODONE [Concomitant]
  10. ACETAMINOPHEN [Concomitant]
  11. LORAZEPAM [Concomitant]
  12. PRAZOSIN HCL [Concomitant]
     Route: 048
  13. SIMVASTATIN [Concomitant]
     Route: 048
  14. TRAMADOL HCL [Concomitant]
     Route: 048
  15. TRAZODONE HCL [Concomitant]
     Route: 048
  16. ROCEPHIN [Concomitant]
  17. PLATELETS [Concomitant]

REACTIONS (1)
  - THROMBOSIS [None]
